FAERS Safety Report 5622835-X (Version None)
Quarter: 2008Q1

REPORT INFORMATION
  Report Type: 
  Country: None (occurrence: None)
  Receive Date: 20080212
  Receipt Date: 20080201
  Transmission Date: 20080703
  Serious: Yes (Other)
  Sender: FDA-Public Use
  Company Number: JP-ELI_LILLY_AND_COMPANY-JP200802000988

PATIENT
  Sex: Female
  Weight: 46.4 kg

DRUGS (3)
  1. EVISTA [Suspect]
     Indication: OSTEOPOROSIS
     Dosage: 60 MG, DAILY (1/D)
     Route: 048
     Dates: start: 20050921, end: 20080125
  2. AMARYL [Concomitant]
     Dosage: 0.5 MG, DAILY (1/D)
     Route: 048
     Dates: start: 20050427
  3. NELBIS [Concomitant]
     Dosage: 750 MG, 2/D
     Route: 048
     Dates: start: 20051027

REACTIONS (1)
  - RETINAL ARTERY THROMBOSIS [None]
